FAERS Safety Report 6674161-8 (Version None)
Quarter: 2010Q2

REPORT INFORMATION
  Report Type: 
  Country: None (occurrence: None)
  Receive Date: 20100407
  Receipt Date: 20100322
  Transmission Date: 20101027
  Serious: Yes (Death)
  Sender: FDA-Public Use
  Company Number: 2010AP000582

PATIENT
  Age: 56 Year
  Sex: Male

DRUGS (5)
  1. RISPERIDONE [Suspect]
     Indication: PSYCHOTIC DISORDER
     Dosage: 3 MG;BID; PO
     Route: 048
     Dates: start: 20080717
  2. VENLAFAXINE HCL [Suspect]
     Indication: PSYCHOTIC DISORDER
     Dosage: 75 MG;QD; PO
     Route: 048
     Dates: start: 20090108
  3. PROCYCLIDINE HYDROCHLORIDE (PROCYCLIDINE HYDROCHLORIDE) [Concomitant]
  4. PROPRANOLOL [Concomitant]
  5. VENLAFAXINE HCL [Suspect]
     Indication: PSYCHOTIC DISORDER
     Dosage: 75 MG,PO, QD.
     Route: 048
     Dates: start: 20090108

REACTIONS (2)
  - CARDIOTOXICITY [None]
  - MYOCARDIAL ISCHAEMIA [None]
